FAERS Safety Report 13627538 (Version 1)
Quarter: 2017Q2

REPORT INFORMATION
  Report Type: Spontaneous
  Country: FR (occurrence: FR)
  Receive Date: 20170608
  Receipt Date: 20170608
  Transmission Date: 20170830
  Serious: Yes (Other)
  Sender: FDA-Public Use
  Company Number: FR-009507513-1706FRA001085

PATIENT
  Age: 53 Year
  Sex: Male

DRUGS (2)
  1. LOXEN [Concomitant]
     Active Substance: NICARDIPINE HYDROCHLORIDE
  2. INEGY [Suspect]
     Active Substance: EZETIMIBE\SIMVASTATIN
     Indication: TYPE IIA HYPERLIPIDAEMIA
     Route: 048

REACTIONS (1)
  - Renal failure [Recovered/Resolved]
